FAERS Safety Report 8510839-9 (Version None)
Quarter: 2012Q3

REPORT INFORMATION
  Report Type: 
  Country: None (occurrence: None)
  Receive Date: 20120716
  Receipt Date: 20120703
  Transmission Date: 20120928
  Serious: Yes (Hospitalization, Other)
  Sender: FDA-Public Use
  Company Number: US-ELI_LILLY_AND_COMPANY-US201207001420

PATIENT
  Sex: Male

DRUGS (2)
  1. HUMALOG [Suspect]
     Indication: DIABETES MELLITUS
     Dosage: 2 U, PRN
     Dates: start: 20120101
  2. LANTUS [Concomitant]
     Dosage: UNK

REACTIONS (3)
  - BRAIN NEOPLASM MALIGNANT [None]
  - MEDICATION ERROR [None]
  - MONOPARESIS [None]
